FAERS Safety Report 25681955 (Version 1)
Quarter: 2025Q3

REPORT INFORMATION
  Report Type: Other
  Country: ZA (occurrence: ZA)
  Receive Date: 20250814
  Receipt Date: 20250814
  Transmission Date: 20251021
  Serious: Yes (Other)
  Sender: EMD SERONO INC
  Company Number: ZA-Merck Healthcare KGaA-2025040660

PATIENT
  Age: 36 Year
  Sex: Male

DRUGS (3)
  1. LEVOTHYROXINE [Suspect]
     Active Substance: LEVOTHYROXINE
     Indication: Suicidal ideation
  2. WARFARIN [Suspect]
     Active Substance: WARFARIN
     Indication: Suicidal ideation
  3. SODIUM IODIDE I-131 [Concomitant]
     Active Substance: SODIUM IODIDE I-131
     Indication: Graves^ disease

REACTIONS (4)
  - International normalised ratio increased [Unknown]
  - Suicide attempt [Unknown]
  - Thyroxine free increased [Unknown]
  - Intentional overdose [Unknown]
